FAERS Safety Report 4940439-9 (Version None)
Quarter: 2006Q1

REPORT INFORMATION
  Report Type: 
  Country: None (occurrence: None)
  Receive Date: 20060131
  Receipt Date: 20051205
  Transmission Date: 20060701
  Serious: No
  Sender: FDA-Public Use
  Company Number: 200520171US

PATIENT
  Sex: Female

DRUGS (1)
  1. KETEK [Suspect]
     Indication: ACUTE SINUSITIS
     Dates: start: 20051202

REACTIONS (1)
  - FLUSHING [None]
